FAERS Safety Report 5421183-0 (Version None)
Quarter: 2007Q3

REPORT INFORMATION
  Report Type: 
  Country: None (occurrence: None)
  Receive Date: 20070821
  Receipt Date: 20070813
  Transmission Date: 20080115
  Serious: Yes (Hospitalization)
  Sender: FDA-Public Use
  Company Number: FR-ASTRAZENECA-2007CG00941

PATIENT
  Age: 25369 Day
  Sex: Female
  Weight: 91 kg

DRUGS (9)
  1. NEXIUM [Suspect]
     Indication: GASTROOESOPHAGEAL REFLUX DISEASE
     Route: 048
     Dates: start: 20050414
  2. NEXIUM [Suspect]
     Indication: HIATUS HERNIA
     Route: 048
     Dates: start: 20050414
  3. NEXIUM [Suspect]
     Indication: GASTRIC ULCER
     Route: 048
     Dates: start: 20050414
  4. CORTANCYL [Concomitant]
     Indication: RHEUMATOID ARTHRITIS
  5. CLONAZEPAM [Concomitant]
     Indication: PAIN
  6. FLUOXETINE [Concomitant]
     Indication: DEPRESSION
  7. FOSAMAX [Concomitant]
     Indication: OSTEOPOROSIS
  8. TRAMADOL HCL [Concomitant]
     Indication: PAIN
  9. DOLIPRANE [Concomitant]
     Indication: PAIN

REACTIONS (1)
  - BLOOD CHROMOGRANIN A INCREASED [None]
